FAERS Safety Report 7420670-3 (Version None)
Quarter: 2011Q2

REPORT INFORMATION
  Report Type: 
  Country: None (occurrence: None)
  Receive Date: 20110418
  Receipt Date: 20110405
  Transmission Date: 20111010
  Serious: Yes (Congenital Anomaly)
  Sender: FDA-Public Use
  Company Number: BR-ROCHE-716943

PATIENT
  Sex: Male
  Weight: 3.5 kg

DRUGS (2)
  1. ROACUTAN [Suspect]
     Route: 064
  2. ROACUTAN [Suspect]
     Route: 064
     Dates: start: 20100630, end: 20100707

REACTIONS (2)
  - EAR MALFORMATION [None]
  - JAUNDICE [None]
